FAERS Safety Report 26144671 (Version 2)
Quarter: 2025Q4

REPORT INFORMATION
  Report Type: Report from Study
  Country: PY (occurrence: PY)
  Receive Date: 20251211
  Receipt Date: 20251230
  Transmission Date: 20260117
  Serious: Yes (Other)
  Sender: ROCHE
  Company Number: PY-ROCHE-10000438482

PATIENT
  Age: 51 Year
  Sex: Female

DRUGS (2)
  1. ACTEMRA [Suspect]
     Active Substance: TOCILIZUMAB
     Indication: Rheumatoid arthritis
     Dosage: DOSE: 162MG/0.9ML
     Route: 058
     Dates: start: 20241021, end: 20250707
  2. ACTEMRA [Suspect]
     Active Substance: TOCILIZUMAB
     Dosage: DOSE AND FREQUENCY WERE NOT

REACTIONS (3)
  - Hemiplegia [Not Recovered/Not Resolved]
  - Headache [Not Recovered/Not Resolved]
  - Diabetes mellitus inadequate control [Unknown]

NARRATIVE: CASE EVENT DATE: 20251101
